FAERS Safety Report 17486390 (Version 1)
Quarter: 2020Q1

REPORT INFORMATION
  Report Type: Report from Study
  Country: CN (occurrence: CN)
  Receive Date: 20200303
  Receipt Date: 20200303
  Transmission Date: 20200409
  Serious: Yes (Other)
  Sender: FDA-Public Use
  Company Number: CN-SA-2020SA050702

PATIENT
  Age: 53 Year
  Sex: Male

DRUGS (2)
  1. GIMERACIL;OTERACIL;TEGAFUR [Suspect]
     Active Substance: GIMERACIL\OTERACIL\TEGAFUR
     Indication: RETROPERITONEAL CANCER
     Dosage: ORAL S-1 (50 MG TWICE DAILY FOR D1-14, 28 DAYS FOR ONE CYCLE)
     Route: 048
  2. OXALIPLATIN. [Suspect]
     Active Substance: OXALIPLATIN
     Indication: RETROPERITONEAL CANCER
     Dosage: UNK UNK, QCY

REACTIONS (3)
  - Treatment failure [Unknown]
  - Liver injury [Unknown]
  - Hepatic enzyme increased [Unknown]
